FAERS Safety Report 8601473-0 (Version None)
Quarter: 2012Q3

REPORT INFORMATION
  Report Type: 
  Country: None (occurrence: None)
  Receive Date: 20120817
  Receipt Date: 20110830
  Transmission Date: 20120928
  Serious: Yes (Other)
  Sender: FDA-Public Use
  Company Number: US-BRISTOL-MYERS SQUIBB COMPANY-16018038

PATIENT
  Age: 56 Year
  Sex: Female
  Weight: 97 kg

DRUGS (6)
  1. SOMA [Concomitant]
  2. POTASSIUM [Concomitant]
     Dosage: 1 DF : PILLS 2-3
  3. SPRYCEL [Suspect]
     Indication: CHRONIC MYELOID LEUKAEMIA
     Dosage: STOPPED SPRYCEL FOR 1 DAY
     Route: 048
     Dates: start: 20101123
  4. XANAX [Concomitant]
  5. FUROSEMIDE [Concomitant]
  6. MULTI-VITAMINS [Concomitant]

REACTIONS (9)
  - PNEUMONIA [None]
  - PLEURAL EFFUSION [None]
  - DRY SKIN [None]
  - WHITE BLOOD CELL DISORDER [None]
  - DRY EYE [None]
  - WEIGHT DECREASED [None]
  - SKIN DISORDER [None]
  - SWELLING [None]
  - ALLERGY TO ARTHROPOD STING [None]
